FAERS Safety Report 4552143-X (Version None)
Quarter: 2004Q4

REPORT INFORMATION
  Report Type: 
  Country: None (occurrence: None)
  Receive Date: 20041217
  Receipt Date: 20041026
  Transmission Date: 20050328
  Serious: No
  Sender: FDA-Public Use
  Company Number: 2004-BP-10849BP

PATIENT
  Sex: Female

DRUGS (4)
  1. SPIRIVA [Suspect]
     Indication: CHRONIC OBSTRUCTIVE AIRWAYS DISEASE
     Dosage: 18 MCG (18 MCG), PO
     Route: 048
     Dates: start: 20040901
  2. LIPITOR (STORVASTATIN) [Concomitant]
  3. SYNTHROID [Concomitant]
  4. TAPAZOLE [Concomitant]

REACTIONS (1)
  - OEDEMA PERIPHERAL [None]
